FAERS Safety Report 14003821 (Version 2)
Quarter: 2019Q1

REPORT INFORMATION
  Report Type: Spontaneous
  Country: US (occurrence: US)
  Receive Date: 20170922
  Receipt Date: 20190126
  Transmission Date: 20190417
  Serious: No
  Sender: FDA-Public Use
  Company Number: US-JNJFOC-20170805112

PATIENT
  Age: 63 Year
  Sex: Male
  Weight: 83.92 kg

DRUGS (17)
  1. DURAGESIC [Suspect]
     Active Substance: FENTANYL
     Indication: PAIN
     Route: 062
     Dates: start: 2005
  2. UNSPECIFIED FENTANYL [Suspect]
     Active Substance: FENTANYL
     Indication: PAIN
     Route: 065
     Dates: start: 2008
  3. DURAGESIC [Suspect]
     Active Substance: FENTANYL
     Indication: CREST SYNDROME
     Route: 062
     Dates: start: 2006, end: 2008
  4. DURAGESIC [Suspect]
     Active Substance: FENTANYL
     Indication: PAIN
     Route: 062
     Dates: start: 2011
  5. DURAGESIC [Suspect]
     Active Substance: FENTANYL
     Indication: CREST SYNDROME
     Route: 062
  6. METHOTREXATE. [Concomitant]
     Active Substance: METHOTREXATE
     Route: 065
  7. DURAGESIC [Suspect]
     Active Substance: FENTANYL
     Indication: CREST SYNDROME
     Route: 062
     Dates: start: 2011
  8. DURAGESIC [Suspect]
     Active Substance: FENTANYL
     Indication: PAIN
     Route: 062
  9. TRAMADOL. [Concomitant]
     Active Substance: TRAMADOL
     Indication: BREAKTHROUGH PAIN
     Route: 065
  10. PREDNISONE. [Concomitant]
     Active Substance: PREDNISONE
     Route: 065
  11. DURAGESIC [Suspect]
     Active Substance: FENTANYL
     Indication: PAIN
     Route: 062
  12. DURAGESIC [Suspect]
     Active Substance: FENTANYL
     Indication: CREST SYNDROME
     Route: 062
  13. DURAGESIC [Suspect]
     Active Substance: FENTANYL
     Indication: CREST SYNDROME
     Route: 062
     Dates: start: 2005
  14. DURAGESIC [Suspect]
     Active Substance: FENTANYL
     Indication: PAIN
     Route: 062
     Dates: start: 2006, end: 2008
  15. FOLIC ACID. [Concomitant]
     Active Substance: FOLIC ACID
     Route: 065
  16. DIPHENHYDRAMINE. [Concomitant]
     Active Substance: DIPHENHYDRAMINE
     Route: 065
  17. CINITAPRIDE [Concomitant]
     Route: 065

REACTIONS (10)
  - Nausea [Recovered/Resolved]
  - Anxiety [Recovered/Resolved]
  - Incorrect product administration duration [Not Recovered/Not Resolved]
  - Malaise [Unknown]
  - Pain [Not Recovered/Not Resolved]
  - Dysgeusia [Recovered/Resolved]
  - Rash [Unknown]
  - Drug ineffective [Unknown]
  - Drug tolerance [Unknown]
  - Skin atrophy [Unknown]

NARRATIVE: CASE EVENT DATE: 2010
